FAERS Safety Report 5568297-2 (Version None)
Quarter: 2007Q4

REPORT INFORMATION
  Report Type: 
  Country: None (occurrence: None)
  Receive Date: 20071220
  Receipt Date: 20071211
  Transmission Date: 20080405
  Serious: Yes (Other)
  Sender: FDA-Public Use
  Company Number: JP-BAYER-200711000BYL

PATIENT
  Age: 59 Year
  Sex: Male

DRUGS (3)
  1. ASPIRIN [Suspect]
     Route: 048
     Dates: start: 20060801, end: 20061001
  2. PANALDINE [Suspect]
     Route: 048
     Dates: start: 20060801, end: 20061001
  3. TAKEPRON [Suspect]
     Route: 048
     Dates: start: 20060801, end: 20061001

REACTIONS (1)
  - AGRANULOCYTOSIS [None]
